FAERS Safety Report 5186835-9 (Version None)
Quarter: 2006Q4

REPORT INFORMATION
  Report Type: 
  Country: None (occurrence: None)
  Receive Date: 20061213
  Receipt Date: 20061201
  Transmission Date: 20070319
  Serious: Yes (Hospitalization)
  Sender: FDA-Public Use
  Company Number: ALK_0070_2006

PATIENT
  Age: 41 Year
  Sex: Female
  Weight: 49.8957 kg

DRUGS (9)
  1. VIVITROL [Suspect]
     Indication: ALCOHOLISM
     Dosage: 380 MG QM IM
     Route: 030
     Dates: start: 20060911
  2. SEROQUEL [Concomitant]
  3. TRAZODONE HCL [Concomitant]
  4. EFFEXOR XR [Concomitant]
  5. ZOLOFT [Concomitant]
  6. VICODIN [Concomitant]
  7. PREVACID [Concomitant]
  8. POTASSIUM ACETATE [Concomitant]
  9. ANTIVERT [Concomitant]

REACTIONS (3)
  - HYPOKALAEMIA [None]
  - NAUSEA [None]
  - STOMACH DISCOMFORT [None]
